FAERS Safety Report 25123625 (Version 1)
Quarter: 2025Q1

REPORT INFORMATION
  Report Type: Spontaneous
  Country: US (occurrence: US)
  Receive Date: 20250326
  Receipt Date: 20250326
  Transmission Date: 20250409
  Serious: No
  Sender: GRIFOLS
  Company Number: US-IGSA-BIG0027421

PATIENT
  Sex: Male
  Weight: 93.8 kg

DRUGS (7)
  1. PROLASTIN-C LIQUID [Suspect]
     Active Substance: .ALPHA.1-PROTEINASE INHIBITOR HUMAN
     Indication: Alpha-1 antitrypsin deficiency
     Dosage: 5640 MILLIGRAM, Q.WK.
     Route: 042
     Dates: start: 20201030
  2. LIPITOR [Concomitant]
     Active Substance: ATORVASTATIN CALCIUM
  3. LISINOPRIL [Concomitant]
     Active Substance: LISINOPRIL
  4. KLONOPIN [Concomitant]
     Active Substance: CLONAZEPAM
  5. NOVOLOG [Concomitant]
     Active Substance: INSULIN ASPART
  6. TRESIBA [Concomitant]
     Active Substance: INSULIN DEGLUDEC
  7. ALBUTEROL SULFATE [Concomitant]
     Active Substance: ALBUTEROL SULFATE

REACTIONS (4)
  - Pruritus [Recovering/Resolving]
  - Hypoaesthesia oral [Recovering/Resolving]
  - Headache [Recovering/Resolving]
  - Product preparation error [Recovering/Resolving]
